FAERS Safety Report 7170808-0 (Version None)
Quarter: 2010Q4

REPORT INFORMATION
  Report Type: 
  Country: None (occurrence: None)
  Receive Date: 20101217
  Receipt Date: 20101210
  Transmission Date: 20110411
  Serious: Yes (Other)
  Sender: FDA-Public Use
  Company Number: US-JNJFOC-20101205317

PATIENT
  Sex: Female
  Weight: 65.77 kg

DRUGS (9)
  1. DURAGESIC-100 [Suspect]
     Indication: OSTEOPOROSIS
     Route: 062
  2. DURAGESIC-100 [Suspect]
     Indication: SYSTEMIC LUPUS ERYTHEMATOSUS
     Route: 062
  3. DURAGESIC-100 [Suspect]
     Indication: PAIN
     Route: 062
  4. FENTANYL [Suspect]
     Indication: OSTEOPOROSIS
     Route: 062
  5. FENTANYL [Suspect]
     Indication: SYSTEMIC LUPUS ERYTHEMATOSUS
     Route: 062
  6. FENTANYL [Suspect]
     Indication: PAIN
     Route: 062
  7. DURAGESIC-100 [Suspect]
     Route: 062
  8. DURAGESIC-100 [Suspect]
     Route: 062
  9. DURAGESIC-100 [Suspect]
     Route: 062

REACTIONS (3)
  - BODY HEIGHT DECREASED [None]
  - DRUG EFFECT DECREASED [None]
  - PRODUCT ADHESION ISSUE [None]
